APPROVED DRUG PRODUCT: KETOCONAZOLE
Active Ingredient: KETOCONAZOLE
Strength: 200MG
Dosage Form/Route: TABLET;ORAL
Application: A075319 | Product #001 | TE Code: AB
Applicant: TARO PHARMACEUTICAL INDUSTRIES LTD
Approved: Jun 15, 1999 | RLD: No | RS: Yes | Type: RX